FAERS Safety Report 6429002-0 (Version None)
Quarter: 2009Q4

REPORT INFORMATION
  Report Type: 
  Country: None (occurrence: None)
  Receive Date: 20091102
  Receipt Date: 20091019
  Transmission Date: 20100525
  Serious: Yes (Hospitalization)
  Sender: FDA-Public Use
  Company Number: 231970K07USA

PATIENT
  Age: 61 Year
  Sex: Female

DRUGS (6)
  1. REBIF [Suspect]
     Indication: MULTIPLE SCLEROSIS
     Dosage: 44 MCG, 3 IN 7 DAYS, SUBCUTANEOUS
     Route: 058
     Dates: start: 20060807, end: 20081101
  2. LISINOPRIL [Concomitant]
  3. COZAAR [Concomitant]
  4. NORVASC [Concomitant]
  5. MORPHINE [Concomitant]
  6. ASPIRIN [Concomitant]

REACTIONS (9)
  - BACTERIURIA [None]
  - BLOOD PHOSPHORUS DECREASED [None]
  - BLOOD POTASSIUM DECREASED [None]
  - BLOOD URINE PRESENT [None]
  - HEADACHE [None]
  - HYPERTENSION [None]
  - NEPHROLITHIASIS [None]
  - RENAL IMPAIRMENT [None]
  - URINARY TRACT INFECTION [None]
